FAERS Safety Report 8506306 (Version 2)
Quarter: 2012Q4

REPORT INFORMATION
  Report Type: Report from Study
  Country: JP (occurrence: JP)
  Receive Date: 20120412
  Receipt Date: 20120913
  Transmission Date: 20130627
  Serious: Yes (Other)
  Sender: FDA-Public Use
  Company Number: JP-PFIZER INC-2012089208

PATIENT
  Age: 69 Year
  Sex: Male
  Weight: 81.5 kg

DRUGS (8)
  1. ATORVASTATIN CALCIUM [Suspect]
     Indication: HYPERCHOLESTEROLAEMIA
     Dosage: 5 mg, 1x/day
     Route: 048
     Dates: start: 20110823
  2. BASEN [Concomitant]
     Indication: DIABETES MELLITUS
     Dosage: UNK
     Route: 048
  3. NESINA [Concomitant]
     Indication: DIABETES MELLITUS
     Dosage: UNK
     Route: 048
     Dates: start: 20110726
  4. DECADRON [Concomitant]
     Dosage: UNK
  5. CLINDAMYCIN PHOSPHATE [Concomitant]
     Dosage: UNK
  6. MEIACT [Concomitant]
     Dosage: UNK
     Route: 048
  7. LOXONIN [Concomitant]
     Dosage: UNK
     Route: 048
  8. BIO-THREE [Concomitant]
     Dosage: UNK
     Route: 048

REACTIONS (2)
  - Diabetes mellitus [Not Recovered/Not Resolved]
  - Pharyngitis bacterial [Recovered/Resolved]
